FAERS Safety Report 14099106 (Version 2)
Quarter: 2017Q4

REPORT INFORMATION
  Report Type: Spontaneous
  Country: US (occurrence: US)
  Receive Date: 20171017
  Receipt Date: 20171212
  Transmission Date: 20180321
  Serious: Yes (Other)
  Sender: FDA-Public Use
  Company Number: US-009507513-1710USA005824

PATIENT
  Age: 63 Year
  Sex: Female
  Weight: 99.77 kg

DRUGS (8)
  1. DEXTROSE. [Concomitant]
     Active Substance: DEXTROSE
     Indication: PREMEDICATION
     Dosage: UNK
     Route: 042
     Dates: start: 2017
  2. EMEND [Suspect]
     Active Substance: APREPITANT
     Dosage: 150 MG, ONCE
     Route: 042
     Dates: start: 2017, end: 2017
  3. CARBOPLATIN. [Concomitant]
     Active Substance: CARBOPLATIN
     Indication: LUNG NEOPLASM MALIGNANT
     Dosage: UNK
     Dates: start: 2017
  4. ETOPOSIDE. [Concomitant]
     Active Substance: ETOPOSIDE
     Indication: LUNG NEOPLASM MALIGNANT
     Dosage: UNK
     Dates: start: 2017
  5. BENADRYL [Concomitant]
     Active Substance: DIPHENHYDRAMINE HYDROCHLORIDE
     Indication: PREMEDICATION
     Dosage: UNK
     Route: 042
     Dates: start: 2017
  6. KEYTRUDA [Concomitant]
     Active Substance: PEMBROLIZUMAB
     Indication: LUNG NEOPLASM MALIGNANT
     Dosage: UNK
     Dates: start: 2017
  7. EMEND [Suspect]
     Active Substance: APREPITANT
     Indication: PROPHYLAXIS OF NAUSEA AND VOMITING
     Dosage: 150 MG, ONCE
     Route: 042
     Dates: start: 201708, end: 201708
  8. EMEND [Suspect]
     Active Substance: APREPITANT
     Dosage: 150 MG, ONCE
     Route: 042
     Dates: start: 20171003, end: 20171003

REACTIONS (3)
  - Anaphylactic reaction [Recovered/Resolved]
  - Nausea [Recovered/Resolved]
  - Cardiomyopathy [Recovered/Resolved]

NARRATIVE: CASE EVENT DATE: 2017
